FAERS Safety Report 4294361-4 (Version None)
Quarter: 2004Q1

REPORT INFORMATION
  Report Type: 
  Country: None (occurrence: None)
  Receive Date: 20040211
  Receipt Date: 20040128
  Transmission Date: 20041129
  Serious: Yes (Death, Other)
  Sender: FDA-Public Use
  Company Number: US_0401100182

PATIENT
  Age: 49 Year
  Sex: Male

DRUGS (5)
  1. CIALIS [Suspect]
     Indication: ERECTILE DYSFUNCTION
     Dosage: 10 MG
     Dates: start: 20040101, end: 20040101
  2. ANTIHYPERSENSITIVE [Concomitant]
  3. LIPID LOWERING MEDICATION [Concomitant]
  4. VIAGRA [Concomitant]
  5. VARDENAFIL [Concomitant]

REACTIONS (6)
  - COMA [None]
  - DRUG INEFFECTIVE [None]
  - LOSS OF CONSCIOUSNESS [None]
  - MYOCARDIAL INFARCTION [None]
  - PULSE ABSENT [None]
  - RESPIRATORY ARREST [None]
